FAERS Safety Report 4288823-3 (Version None)
Quarter: 2004Q1

REPORT INFORMATION
  Report Type: 
  Country: None (occurrence: None)
  Receive Date: 20040209
  Receipt Date: 20040129
  Transmission Date: 20041129
  Serious: Yes (Other)
  Sender: FDA-Public Use
  Company Number: PHFR2004GB00822

PATIENT

DRUGS (1)
  1. NEORAL [Suspect]
     Route: 065

REACTIONS (1)
  - SCHIZOPHRENIA [None]
